FAERS Safety Report 12998557 (Version 1)
Quarter: 2016Q4

REPORT INFORMATION
  Report Type: Spontaneous
  Country: IT (occurrence: IT)
  Receive Date: 20161205
  Receipt Date: 20161205
  Transmission Date: 20170207
  Serious: Yes (Other)
  Sender: FDA-Public Use
  Company Number: IT-VALIDUS PHARMACEUTICALS LLC-IT-2016VAL003106

PATIENT
  Age: 41 Year
  Sex: Male

DRUGS (3)
  1. METHYLPREDNISOLONE. [Suspect]
     Active Substance: METHYLPREDNISOLONE
     Indication: SEGMENTED HYALINISING VASCULITIS
     Dosage: 0.5 MG/KG, QD
     Route: 048
  2. ACETYLSALICYLIC ACID [Suspect]
     Active Substance: ASPIRIN
     Indication: SEGMENTED HYALINISING VASCULITIS
     Dosage: 100 MG, QD
  3. PENTOXIFYLLINE. [Suspect]
     Active Substance: PENTOXIFYLLINE
     Indication: SEGMENTED HYALINISING VASCULITIS
     Dosage: 600 MG, BID

REACTIONS (3)
  - Condition aggravated [Recovered/Resolved]
  - Drug ineffective [Recovered/Resolved]
  - Segmented hyalinising vasculitis [Recovered/Resolved]
